FAERS Safety Report 17772486 (Version 6)
Quarter: 2022Q2

REPORT INFORMATION
  Report Type: Spontaneous
  Country: AT (occurrence: AT)
  Receive Date: 20200512
  Receipt Date: 20220519
  Transmission Date: 20220721
  Serious: Yes (Other)
  Sender: FDA-Public Use
  Company Number: NVSC2020AT127967

PATIENT
  Age: 75 Year
  Sex: Male
  Weight: 79 kg

DRUGS (3)
  1. CIPROFLOXACIN [Suspect]
     Active Substance: CIPROFLOXACIN
     Indication: Inflammatory bowel disease
     Dosage: 500 MG, BID (1000 MG QD)
     Route: 065
     Dates: start: 20200212, end: 20200217
  2. CIPROFLOXACIN [Suspect]
     Active Substance: CIPROFLOXACIN
     Indication: Enteritis
     Dosage: 500 MG, QD
     Route: 048
     Dates: start: 20200212, end: 20200217
  3. CIPROFLOXACIN [Suspect]
     Active Substance: CIPROFLOXACIN
     Indication: Enteritis infectious
     Dosage: 1 DF, Q12H (AUF 5 TAGE JE 2 TABL)
     Route: 065
     Dates: start: 202002

REACTIONS (30)
  - Condition aggravated [Unknown]
  - Paraparesis [Unknown]
  - Back pain [Unknown]
  - Tendon pain [Unknown]
  - Gait inability [Unknown]
  - Myalgia [Unknown]
  - Muscular weakness [Not Recovered/Not Resolved]
  - Spinal pain [Not Recovered/Not Resolved]
  - Dizziness [Not Recovered/Not Resolved]
  - Parosmia [Not Recovered/Not Resolved]
  - Rash [Not Recovered/Not Resolved]
  - Asthenia [Not Recovered/Not Resolved]
  - Extrasystoles [Not Recovered/Not Resolved]
  - Taste disorder [Not Recovered/Not Resolved]
  - Weight decreased [Not Recovered/Not Resolved]
  - Gait disturbance [Not Recovered/Not Resolved]
  - Arthralgia [Not Recovered/Not Resolved]
  - Arthralgia [Not Recovered/Not Resolved]
  - Decreased appetite [Not Recovered/Not Resolved]
  - Panic attack [Not Recovered/Not Resolved]
  - Nausea [Not Recovered/Not Resolved]
  - Musculoskeletal pain [Not Recovered/Not Resolved]
  - Musculoskeletal pain [Not Recovered/Not Resolved]
  - Feeding disorder [Not Recovered/Not Resolved]
  - Gastrointestinal disorder [Not Recovered/Not Resolved]
  - Gait disturbance [Not Recovered/Not Resolved]
  - Headache [Not Recovered/Not Resolved]
  - Tendon pain [Not Recovered/Not Resolved]
  - Insomnia [Not Recovered/Not Resolved]
  - Somnolence [Not Recovered/Not Resolved]

NARRATIVE: CASE EVENT DATE: 20200201
